FAERS Safety Report 14024313 (Version 1)
Quarter: 2017Q3

REPORT INFORMATION
  Report Type: Spontaneous
  Country: US (occurrence: US)
  Receive Date: 20170928
  Receipt Date: 20170928
  Transmission Date: 20171128
  Serious: No
  Sender: FDA-Public Use
  Company Number: US-SA-2017SA001680

PATIENT
  Age: 53 Year
  Sex: Female

DRUGS (6)
  1. NITROFURANTOIN. [Concomitant]
     Active Substance: NITROFURANTOIN
  2. AUBAGIO [Suspect]
     Active Substance: TERIFLUNOMIDE
     Indication: MULTIPLE SCLEROSIS
     Route: 048
     Dates: start: 2015
  3. LYRICA [Concomitant]
     Active Substance: PREGABALIN
  4. TRAZODONE [Concomitant]
     Active Substance: TRAZODONE HYDROCHLORIDE
  5. EFFEXOR [Concomitant]
     Active Substance: VENLAFAXINE HYDROCHLORIDE
  6. VITAMIN D [Concomitant]
     Active Substance: CHOLECALCIFEROL

REACTIONS (9)
  - Vaginal infection [Recovering/Resolving]
  - Depression [Recovering/Resolving]
  - Fibromyalgia [Recovering/Resolving]
  - Mood altered [Recovering/Resolving]
  - Decreased interest [Recovering/Resolving]
  - Dry eye [Unknown]
  - Cystitis [Recovering/Resolving]
  - Alopecia [Unknown]
  - Dry mouth [Unknown]

NARRATIVE: CASE EVENT DATE: 201606
